FAERS Safety Report 8381495-8 (Version None)
Quarter: 2012Q2

REPORT INFORMATION
  Report Type: 
  Country: None (occurrence: None)
  Receive Date: 20120523
  Receipt Date: 20120518
  Transmission Date: 20120825
  Serious: Yes (Other)
  Sender: FDA-Public Use
  Company Number: CA-ROCHE-1051556

PATIENT
  Sex: Female
  Weight: 79.45 kg

DRUGS (6)
  1. TRILEPTAL [Concomitant]
  2. TEMOZOLOMIDE [Concomitant]
  3. LOMUSTINE [Suspect]
     Indication: PRODUCT USED FOR UNKNOWN INDICATION
     Dates: start: 20120317
  4. AVASTIN [Suspect]
     Indication: GLIOBLASTOMA
     Dosage: LAST DOSE PRIOR TO SAE ON 15/MAR/2012
     Route: 042
     Dates: start: 20111028
  5. AVASTIN [Suspect]
     Dates: start: 20120216
  6. AVASTIN [Suspect]
     Dates: start: 20120413, end: 20120510

REACTIONS (5)
  - DIZZINESS [None]
  - HAEMATEMESIS [None]
  - NAUSEA [None]
  - HEADACHE [None]
  - DISEASE PROGRESSION [None]
